FAERS Safety Report 6988382-8 (Version None)
Quarter: 2010Q3

REPORT INFORMATION
  Report Type: 
  Country: None (occurrence: None)
  Receive Date: 20100916
  Receipt Date: 20100914
  Transmission Date: 20110219
  Serious: Yes (Hospitalization, Disabling, Other)
  Sender: FDA-Public Use
  Company Number: US-MERCK-0908USA02987

PATIENT
  Age: 58 Year
  Sex: Female
  Weight: 69 kg

DRUGS (9)
  1. FOSAMAX [Suspect]
     Indication: OSTEOPENIA
     Route: 048
     Dates: start: 20000522, end: 20060605
  2. FOSAMAX [Suspect]
     Route: 048
     Dates: start: 19991025, end: 20001101
  3. FOSAMAX [Suspect]
     Route: 048
     Dates: start: 20010807
  4. FOSAMAX [Suspect]
     Indication: OSTEOPOROSIS
     Route: 048
     Dates: start: 20000522, end: 20060605
  5. FOSAMAX [Suspect]
     Route: 048
     Dates: start: 19991025, end: 20001101
  6. FOSAMAX [Suspect]
     Route: 048
     Dates: start: 20010807
  7. PREMARIN [Concomitant]
     Route: 065
     Dates: start: 19940101, end: 20020101
  8. SYNTHROID [Concomitant]
     Route: 065
  9. BONIVA [Suspect]
     Route: 065

REACTIONS (33)
  - ARTERIOSCLEROSIS CORONARY ARTERY [None]
  - BENIGN NEOPLASM [None]
  - BLADDER DISORDER [None]
  - BLOOD CHOLESTEROL INCREASED [None]
  - BLOOD PRESSURE INCREASED [None]
  - CHEST DISCOMFORT [None]
  - DENTAL CARIES [None]
  - DIZZINESS [None]
  - DRUG HYPERSENSITIVITY [None]
  - DYSPNOEA [None]
  - FIBROSIS [None]
  - GASTROOESOPHAGEAL REFLUX DISEASE [None]
  - GINGIVAL DISORDER [None]
  - HYPERKERATOSIS [None]
  - HYPERLIPIDAEMIA [None]
  - HYPERPLASIA [None]
  - IMPAIRED HEALING [None]
  - INSOMNIA [None]
  - JAW DISORDER [None]
  - MENOPAUSE [None]
  - ORAL TORUS [None]
  - OSTEOMYELITIS ACUTE [None]
  - OSTEONECROSIS OF JAW [None]
  - PAPILLOMA [None]
  - PULPITIS DENTAL [None]
  - STOMATITIS [None]
  - STRESS URINARY INCONTINENCE [None]
  - TOOTH DISORDER [None]
  - TOOTHACHE [None]
  - URINARY TRACT INFECTION [None]
  - VERTIGO POSITIONAL [None]
  - VESTIBULAR NEURONITIS [None]
  - VISION BLURRED [None]
